FAERS Safety Report 6490922-2 (Version None)
Quarter: 2009Q4

REPORT INFORMATION
  Report Type: 
  Country: None (occurrence: None)
  Receive Date: 20091211
  Receipt Date: 20091201
  Transmission Date: 20100525
  Serious: Yes (Hospitalization)
  Sender: FDA-Public Use
  Company Number: PL-ELI_LILLY_AND_COMPANY-PL200912000177

PATIENT
  Sex: Male
  Weight: 60 kg

DRUGS (1)
  1. GEMZAR [Suspect]
     Indication: BLADDER CANCER
     Dosage: 1660 MG, UNKNOWN
     Route: 042
     Dates: start: 20091020

REACTIONS (2)
  - CONVULSION [None]
  - SYNCOPE [None]
